FAERS Safety Report 14723180 (Version 1)
Quarter: 2018Q2

REPORT INFORMATION
  Report Type: Spontaneous
  Country: AU (occurrence: AU)
  Receive Date: 20180405
  Receipt Date: 20180405
  Transmission Date: 20180711
  Serious: Yes (Other)
  Sender: FDA-Public Use
  Company Number: AU-SA-2018SA087560

PATIENT
  Age: 27 Year
  Sex: Female

DRUGS (6)
  1. ENOXAPARIN SODIUM. [Suspect]
     Active Substance: ENOXAPARIN SODIUM
     Indication: ANTICOAGULANT THERAPY
     Route: 065
  2. HEPARIN [Suspect]
     Active Substance: HEPARIN SODIUM
     Indication: ANTICOAGULANT THERAPY
     Route: 065
  3. DESMOPRESSIN ACETATE. [Suspect]
     Active Substance: DESMOPRESSIN ACETATE
     Indication: NEPHROGENIC DIABETES INSIPIDUS
     Route: 058
  4. PERINDOPRIL [Suspect]
     Active Substance: PERINDOPRIL
     Route: 065
  5. CARVEDILOL. [Suspect]
     Active Substance: CARVEDILOL
     Route: 065
  6. DESMOPRESSIN ACETATE. [Suspect]
     Active Substance: DESMOPRESSIN ACETATE
     Indication: NEPHROGENIC DIABETES INSIPIDUS
     Route: 048

REACTIONS (12)
  - Pulmonary oedema [Recovering/Resolving]
  - Embolism [Recovered/Resolved]
  - Von Willebrand^s factor antigen increased [Recovered/Resolved]
  - Coagulation factor VIII level increased [Recovered/Resolved]
  - Exposure during pregnancy [Unknown]
  - Left ventricle outflow tract obstruction [Recovering/Resolving]
  - Condition aggravated [Recovered/Resolved]
  - Cardiac ventricular thrombosis [Recovered/Resolved]
  - Hypercoagulation [Recovered/Resolved]
  - Drug ineffective [Unknown]
  - Left ventricular dysfunction [Recovering/Resolving]
  - Ejection fraction decreased [Recovering/Resolving]
